FAERS Safety Report 8593926-9 (Version None)
Quarter: 2012Q3

REPORT INFORMATION
  Report Type: 
  Country: None (occurrence: None)
  Receive Date: 20120803
  Receipt Date: 20120803
  Transmission Date: 20120928
  Serious: Yes (Hospitalization)
  Sender: FDA-Public Use
  Company Number: None

PATIENT
  Age: 89 Year
  Sex: Female
  Weight: 60.4 kg

DRUGS (1)
  1. ASPIRIN [Suspect]
     Dosage: 81MG DAILY PO CHRONIC
     Route: 048

REACTIONS (7)
  - HYPERTENSION [None]
  - OESOPHAGEAL ULCER [None]
  - TACHYCARDIA [None]
  - UPPER GASTROINTESTINAL HAEMORRHAGE [None]
  - DUODENAL ULCER [None]
  - ANAEMIA [None]
  - HAEMORRHAGE [None]
